FAERS Safety Report 23633584 (Version 1)
Quarter: 2024Q1

REPORT INFORMATION
  Report Type: Report from Study
  Country: US (occurrence: US)
  Receive Date: 20240314
  Receipt Date: 20240314
  Transmission Date: 20240410
  Serious: Yes (Other)
  Sender: FDA-Public Use
  Company Number: US-TEVA-VS-3167272

PATIENT

DRUGS (1)
  1. METHOTREXATE [Suspect]
     Active Substance: METHOTREXATE
     Indication: Cutaneous T-cell lymphoma
     Route: 065

REACTIONS (5)
  - Dermatitis [Unknown]
  - Decreased appetite [Unknown]
  - Pain [Unknown]
  - Pigmentation disorder [Unknown]
  - Soft tissue disorder [Unknown]
